FAERS Safety Report 4294491-7 (Version None)
Quarter: 2004Q1

REPORT INFORMATION
  Report Type: 
  Country: None (occurrence: None)
  Receive Date: 20040211
  Receipt Date: 20040130
  Transmission Date: 20041129
  Serious: Yes (Hospitalization)
  Sender: FDA-Public Use
  Company Number: US-JNJFOC-20040200462

PATIENT
  Age: 33 Year
  Sex: Female
  Weight: 42.6381 kg

DRUGS (5)
  1. INFLIXIMAB (INFLIXIMAB, RECOMBINANT) LYOPHILIZED POWDER [Suspect]
     Indication: CROHN'S DISEASE
     Dosage: SEE IMAGE
     Route: 042
     Dates: start: 20030710
  2. INFLIXIMAB (INFLIXIMAB, RECOMBINANT) LYOPHILIZED POWDER [Suspect]
     Indication: CROHN'S DISEASE
     Dosage: SEE IMAGE
     Route: 042
     Dates: start: 20030904
  3. MERCAPTOPURINE [Concomitant]
  4. MESALAMINE (MESALAZINE) [Concomitant]
  5. ANTIBIOTICS (ANTIBIOTICS) [Concomitant]

REACTIONS (5)
  - ABDOMINAL PAIN [None]
  - ANAL FISTULA [None]
  - CROHN'S DISEASE [None]
  - INTESTINAL FISTULA [None]
  - OVARIAN DISORDER [None]
